FAERS Safety Report 4895331-5 (Version None)
Quarter: 2006Q1

REPORT INFORMATION
  Report Type: 
  Country: None (occurrence: None)
  Receive Date: 20060130
  Receipt Date: 20051123
  Transmission Date: 20060701
  Serious: Yes (Other)
  Sender: FDA-Public Use
  Company Number: PHFR2005GB03839

PATIENT
  Age: 36 Year
  Sex: Female

DRUGS (2)
  1. SANDOSTATIN LAR [Suspect]
     Indication: ACROMEGALY
  2. CIPRAMIL                                /NET/ [Concomitant]
     Dosage: 10MG/DAY
     Route: 048

REACTIONS (1)
  - ANGIONEUROTIC OEDEMA [None]
